FAERS Safety Report 12940726 (Version 1)
Quarter: 2016Q4

REPORT INFORMATION
  Report Type: Spontaneous
  Country: US (occurrence: US)
  Receive Date: 20161115
  Receipt Date: 20161115
  Transmission Date: 20170207
  Serious: Yes (Hospitalization)
  Sender: FDA-Public Use
  Company Number: None

PATIENT
  Age: 17 Year
  Sex: Male
  Weight: 133.3 kg

DRUGS (11)
  1. METHOTREXATE. [Suspect]
     Active Substance: METHOTREXATE
     Dates: end: 20161019
  2. LANTUS [Concomitant]
     Active Substance: INSULIN GLARGINE
  3. DEXAMETHASONE. [Suspect]
     Active Substance: DEXAMETHASONE
     Dates: end: 20161107
  4. DOXORUBICIN HYDROCHLORIDE. [Suspect]
     Active Substance: DOXORUBICIN HYDROCHLORIDE
     Dates: end: 20161101
  5. ENOXAPARIN [Concomitant]
     Active Substance: ENOXAPARIN
  6. ONCASPAR [Suspect]
     Active Substance: PEGASPARGASE
     Dates: end: 20161022
  7. VINCRISTINE SULFATE. [Suspect]
     Active Substance: VINCRISTINE SULFATE
     Dates: end: 20161101
  8. GABAPENTIN. [Concomitant]
     Active Substance: GABAPENTIN
  9. SULFAMETHOXAZOLE-TRIMETHOPRIM [Concomitant]
     Active Substance: SULFAMETHOXAZOLE\TRIMETHOPRIM
  10. HUMALOG [Concomitant]
     Active Substance: INSULIN LISPRO
  11. ONDANSETRON [Concomitant]
     Active Substance: ONDANSETRON

REACTIONS (5)
  - Device related infection [None]
  - Axillary vein thrombosis [None]
  - Jugular vein thrombosis [None]
  - Subclavian vein thrombosis [None]
  - Peripheral swelling [None]

NARRATIVE: CASE EVENT DATE: 20161108
